FAERS Safety Report 4832519-3 (Version None)
Quarter: 2005Q4

REPORT INFORMATION
  Report Type: 
  Country: None (occurrence: None)
  Receive Date: 20051117
  Receipt Date: 20051117
  Transmission Date: 20060501
  Serious: No
  Sender: FDA-Public Use
  Company Number: None

PATIENT
  Sex: Male
  Weight: 79.3795 kg

DRUGS (1)
  1. LEVITRA [Suspect]
     Indication: ERECTILE DYSFUNCTION
     Dosage: AS NEEDED  39 PILLS TAKEN
     Dates: start: 20050212, end: 20050401

REACTIONS (4)
  - BLINDNESS UNILATERAL [None]
  - EYE DISORDER [None]
  - IMPAIRED DRIVING ABILITY [None]
  - VISUAL DISTURBANCE [None]
